FAERS Safety Report 20029480 (Version 1)
Quarter: 2021Q4

REPORT INFORMATION
  Report Type: Report from Study
  Country: US (occurrence: US)
  Receive Date: 20211103
  Receipt Date: 20211103
  Transmission Date: 20220303
  Serious: Yes (Hospitalization, Other)
  Sender: FDA-Public Use
  Company Number: US-Accord-244022

PATIENT
  Sex: Female
  Weight: 74.84 kg

DRUGS (2)
  1. CLOZAPINE [Suspect]
     Active Substance: CLOZAPINE
     Indication: Schizophrenia
     Dosage: DOSE: 100MG/THREE TIMES A DAY
     Route: 048
  2. COVID-19 VACCINE [Concomitant]
     Indication: Immunisation
     Dosage: 2ND DOSE
     Dates: start: 20210828

REACTIONS (6)
  - Gait inability [Not Recovered/Not Resolved]
  - Quadriplegia [Not Recovered/Not Resolved]
  - Bite [Not Recovered/Not Resolved]
  - Renal impairment [Not Recovered/Not Resolved]
  - Escherichia infection [Not Recovered/Not Resolved]
  - Wound [Not Recovered/Not Resolved]
